FAERS Safety Report 7860032-8 (Version None)
Quarter: 2011Q4

REPORT INFORMATION
  Report Type: 
  Country: None (occurrence: None)
  Receive Date: 20111025
  Receipt Date: 20111011
  Transmission Date: 20120403
  Serious: Yes (Hospitalization)
  Sender: FDA-Public Use
  Company Number: 2011HGS-002477

PATIENT
  Age: 60 Year
  Sex: Female
  Weight: 113.3993 kg

DRUGS (9)
  1. LASIX [Concomitant]
  2. NORFLEX (ORPHENADRINE CITRATE) (ORPHENADRINE CITRATE) [Concomitant]
  3. NITROSTAT (GLYCERYL TRINITRATE) (GLYCERYL TRINITRATE) [Concomitant]
  4. NEXIUM [Concomitant]
  5. POTASSIUM CHLORIDE [Concomitant]
  6. BENLYSTA [Suspect]
     Indication: SYSTEMIC LUPUS ERYTHEMATOSUS
     Dosage: 10 MG/KG, 1 IN 2 WK, INTRAVENOUS  DRIP
     Route: 041
     Dates: start: 20110713, end: 20110713
  7. RESTASIS (CICLOSPORIN) (CICLOSPORIN) [Concomitant]
  8. EVOXAC [Concomitant]
  9. PLAQUENIL (HYDROXYCHLOROQUINE SULFATE) (HYDROZYCHLOROQUINE SULFATE) [Concomitant]

REACTIONS (12)
  - CHILLS [None]
  - ERYTHEMA [None]
  - PAIN [None]
  - OEDEMA PERIPHERAL [None]
  - CHEST PAIN [None]
  - CELLULITIS [None]
  - STAPHYLOCOCCAL BACTERAEMIA [None]
  - INFLUENZA LIKE ILLNESS [None]
  - WHITE BLOOD CELL COUNT DECREASED [None]
  - PYREXIA [None]
  - DRY THROAT [None]
  - OROPHARYNGEAL PAIN [None]
